FAERS Safety Report 12837004 (Version 2)
Quarter: 2016Q4

REPORT INFORMATION
  Report Type: Spontaneous
  Country: US (occurrence: US)
  Receive Date: 20161011
  Receipt Date: 20161021
  Transmission Date: 20170207
  Serious: No
  Sender: FDA-Public Use
  Company Number: US-BAYER-2016-196071

PATIENT
  Age: 76 Year
  Sex: Female
  Weight: 48.98 kg

DRUGS (1)
  1. ALEVE [Suspect]
     Active Substance: NAPROXEN SODIUM
     Indication: PAIN
     Dosage: 1 DF, ONE TIME DOSE
     Route: 048
     Dates: start: 20161009, end: 20161009

REACTIONS (3)
  - Dizziness [Recovered/Resolved]
  - Somnolence [None]
  - Asthenia [Recovered/Resolved]

NARRATIVE: CASE EVENT DATE: 20161009
